FAERS Safety Report 21121707 (Version 2)
Quarter: 2022Q3

REPORT INFORMATION
  Report Type: Spontaneous
  Country: JP (occurrence: JP)
  Receive Date: 20220722
  Receipt Date: 20220901
  Transmission Date: 20221026
  Serious: Yes (Other)
  Sender: FDA-Public Use
  Company Number: JP-UCBSA-2022041238

PATIENT
  Age: 0 Year
  Sex: Male
  Weight: 1.466 kg

DRUGS (12)
  1. CIMZIA [Suspect]
     Active Substance: CERTOLIZUMAB PEGOL
     Indication: Rheumatoid arthritis
     Dosage: 200 MILLIGRAM
     Route: 064
     Dates: end: 20210818
  2. CIMZIA [Suspect]
     Active Substance: CERTOLIZUMAB PEGOL
     Dosage: 200 MILLIGRAM
     Route: 063
  3. PREDONINE [Concomitant]
     Active Substance: PREDNISOLONE
     Indication: Rheumatoid arthritis
     Route: 064
  4. PREDONINE [Concomitant]
     Active Substance: PREDNISOLONE
     Route: 064
  5. PREDNISOLONE [Concomitant]
     Active Substance: PREDNISOLONE
     Indication: Rheumatoid arthritis
     Route: 064
  6. TACROLIMUS [Concomitant]
     Active Substance: TACROLIMUS
     Indication: Rheumatoid arthritis
     Route: 064
  7. TACROLIMUS [Concomitant]
     Active Substance: TACROLIMUS
     Route: 064
  8. CALONAL [Concomitant]
     Active Substance: ACETAMINOPHEN
     Indication: Analgesic therapy
     Route: 064
  9. CALONAL [Concomitant]
     Active Substance: ACETAMINOPHEN
     Route: 064
  10. FAMOTIDINE [Concomitant]
     Active Substance: FAMOTIDINE
     Indication: Prophylaxis
     Route: 064
  11. FAMOTIDINE [Concomitant]
     Active Substance: FAMOTIDINE
     Route: 064
  12. ALFACALCIDOL [Concomitant]
     Active Substance: ALFACALCIDOL
     Indication: Osteoporosis
     Route: 064

REACTIONS (5)
  - Low birth weight baby [Recovering/Resolving]
  - Premature baby [Recovering/Resolving]
  - Maternal exposure before pregnancy [Unknown]
  - Maternal exposure during pregnancy [Unknown]
  - Exposure via breast milk [Unknown]

NARRATIVE: CASE EVENT DATE: 20210208
